FAERS Safety Report 16917256 (Version 1)
Quarter: 2019Q4

REPORT INFORMATION
  Report Type: Spontaneous
  Country: GB (occurrence: GB)
  Receive Date: 20191015
  Receipt Date: 20191015
  Transmission Date: 20200122
  Serious: Yes (Hospitalization)
  Sender: FDA-Public Use
  Company Number: GB-TEVA-2019-GB-1120679

PATIENT
  Age: 73 Year
  Sex: Female

DRUGS (16)
  1. FUROSEMIDE. [Concomitant]
     Active Substance: FUROSEMIDE
  2. ACIDEX [Concomitant]
     Active Substance: CALCIUM CARBONATE\SODIUM ALGINATE\SODIUM BICARBONATE
  3. METFORMIN [Concomitant]
     Active Substance: METFORMIN HYDROCHLORIDE
  4. GLYCERYL TRINITRATE [Concomitant]
     Active Substance: NITROGLYCERIN
  5. WARFARIN [Suspect]
     Active Substance: WARFARIN
     Dosage: 36 MG 1 WEEKS
     Route: 048
  6. DOXYCYCLINE. [Suspect]
     Active Substance: DOXYCYCLINE
     Dosage: 100 MG 1 WEEKS
     Route: 048
  7. PIROXICAM. [Concomitant]
     Active Substance: PIROXICAM
  8. FERROUS FUMARATE [Concomitant]
     Active Substance: FERROUS FUMARATE
  9. CO-DYDRAMOL [Concomitant]
     Active Substance: ACETAMINOPHEN\DIHYDROCODEINE
  10. OMEPRAZOLE. [Concomitant]
     Active Substance: OMEPRAZOLE
  11. BUPRENORPHINE. [Concomitant]
     Active Substance: BUPRENORPHINE
  12. BISOPROLOL [Concomitant]
     Active Substance: BISOPROLOL
  13. RAMIPRIL. [Concomitant]
     Active Substance: RAMIPRIL
  14. DOXYCYCLINE. [Suspect]
     Active Substance: DOXYCYCLINE
     Indication: INFECTION
     Dosage: 200MG STAT
     Route: 048
  15. ISOSORBIDE MONONITRATE. [Concomitant]
     Active Substance: ISOSORBIDE MONONITRATE
  16. WARFARIN [Suspect]
     Active Substance: WARFARIN
     Dosage: 7 MG 1 WEEKS
     Route: 048

REACTIONS (1)
  - Internal haemorrhage [Not Recovered/Not Resolved]
